FAERS Safety Report 7352746-3 (Version None)
Quarter: 2011Q1

REPORT INFORMATION
  Report Type: 
  Country: None (occurrence: None)
  Receive Date: 20110315
  Receipt Date: 20110314
  Transmission Date: 20110831
  Serious: Yes (Death)
  Sender: FDA-Public Use
  Company Number: JP-EISAI INC-E2020-08778-CLI-JP

PATIENT
  Sex: Male

DRUGS (4)
  1. ARICEPT [Suspect]
     Indication: DEMENTIA ALZHEIMER'S TYPE
     Route: 048
     Dates: end: 20101211
  2. PLETAL [Concomitant]
     Route: 048
     Dates: end: 20101210
  3. DIOVAN [Concomitant]
     Route: 048
     Dates: end: 20101211
  4. SEIBULE [Concomitant]
     Route: 048
     Dates: end: 20101210

REACTIONS (1)
  - MYOCARDIAL INFARCTION [None]
